FAERS Safety Report 21467396 (Version 4)
Quarter: 2025Q1

REPORT INFORMATION
  Report Type: Spontaneous
  Country: US (occurrence: US)
  Receive Date: 20221017
  Receipt Date: 20250319
  Transmission Date: 20250409
  Serious: No
  Sender: KYOWA
  Company Number: US-KYOWAKIRIN-2022BKK016103

PATIENT

DRUGS (6)
  1. CRYSVITA [Suspect]
     Active Substance: BUROSUMAB-TWZA
     Indication: Hereditary hypophosphataemic rickets
     Dosage: 10 MG, 1X/2 WEEKS
     Route: 058
     Dates: start: 20210824
  2. CRYSVITA [Suspect]
     Active Substance: BUROSUMAB-TWZA
     Dosage: 20 MG, 1X/2 WEEKS
     Route: 058
     Dates: start: 20210824
  3. CRYSVITA [Suspect]
     Active Substance: BUROSUMAB-TWZA
     Indication: Hereditary hypophosphataemic rickets
     Dosage: 30 MG, 1X/2 WEEKS
     Route: 058
  4. VITAMINS NOS [Concomitant]
     Active Substance: VITAMINS
     Indication: Product used for unknown indication
     Route: 065
  5. K PHOS NEUTRAL [Concomitant]
     Active Substance: POTASSIUM PHOSPHATE, MONOBASIC\SODIUM PHOSPHATE, DIBASIC, ANHYDROUS\SODIUM PHOSPHATE, MONOBASIC, MON
     Indication: Product used for unknown indication
     Route: 065
  6. CALCITRIOL [Concomitant]
     Active Substance: CALCITRIOL
     Indication: Product used for unknown indication
     Route: 065

REACTIONS (2)
  - Blood phosphorus decreased [Unknown]
  - Oral infection [Unknown]

NARRATIVE: CASE EVENT DATE: 20221012
